FAERS Safety Report 22594081 (Version 1)
Quarter: 2023Q2

REPORT INFORMATION
  Report Type: Report from Study
  Country: US (occurrence: US)
  Receive Date: 20230613
  Receipt Date: 20230613
  Transmission Date: 20230721
  Serious: Yes (Death)
  Sender: FDA-Public Use
  Company Number: US-MIRATI-MT2023PM04198

PATIENT

DRUGS (22)
  1. KRAZATI [Suspect]
     Active Substance: ADAGRASIB
     Indication: Lung neoplasm malignant
     Dosage: 600 MG, BID
     Route: 048
     Dates: start: 20230106
  2. LORATADINE [Concomitant]
     Active Substance: LORATADINE
     Dosage: UNK
  3. DULOXETINE [Concomitant]
     Active Substance: DULOXETINE
     Dosage: UNK
  4. FLUDROCORTISONE [Concomitant]
     Active Substance: FLUDROCORTISONE
     Dosage: UNK
  5. FOLIC ACID [Concomitant]
     Active Substance: FOLIC ACID
     Dosage: UNK
  6. FUROSEMIDE [Concomitant]
     Active Substance: FUROSEMIDE
     Dosage: UNK
  7. LEVETIRACETAM [Concomitant]
     Active Substance: LEVETIRACETAM
     Dosage: UNK
  8. LEVOTHYROXINE SODIUM [Concomitant]
     Active Substance: LEVOTHYROXINE SODIUM
     Dosage: UNK
  9. MORPHINE [Concomitant]
     Active Substance: MORPHINE
     Dosage: UNK
  10. NICOTINE TRANSDERMAL SYSTEM [Concomitant]
     Active Substance: NICOTINE
  11. OCEAN SALINE NASAL SPRAY [Concomitant]
     Active Substance: SODIUM CHLORIDE
     Dosage: UNK
  12. OLANZAPINE [Concomitant]
     Active Substance: OLANZAPINE
     Dosage: UNK
  13. OXYCODONE [Concomitant]
     Active Substance: OXYCODONE
     Dosage: UNK
  14. PANTOPRAZOLE [Concomitant]
     Active Substance: PANTOPRAZOLE
     Dosage: UNK
  15. POLYETHYLENE GLYCOL [Concomitant]
     Active Substance: POLYETHYLENE GLYCOL
     Dosage: UNK
  16. PREDNISONE [Concomitant]
     Active Substance: PREDNISONE
     Dosage: UNK
  17. PROCHLORPERAZINE [Concomitant]
     Active Substance: PROCHLORPERAZINE
     Dosage: UNK
  18. SENNA AND DOCUSATE SODIUM [Concomitant]
     Active Substance: DOCUSATE SODIUM\SENNOSIDES
     Dosage: UNK
  19. SIMETHICONE (DIMETHICONE) [Concomitant]
     Active Substance: DIMETHICONE
  20. SOLU-CORTEF [Concomitant]
     Active Substance: HYDROCORTISONE SODIUM SUCCINATE
     Dosage: UNK
  21. VANCOMYCIN [Concomitant]
     Active Substance: VANCOMYCIN
     Dosage: UNK
  22. VITAMIN B12 [Concomitant]
     Active Substance: CYANOCOBALAMIN
     Dosage: UNK

REACTIONS (1)
  - Death [Fatal]
